FAERS Safety Report 9250963 (Version 1)
Quarter: 2013Q1

REPORT INFORMATION
  Report Type: Spontaneous
  Country: US (occurrence: None)
  Receive Date: 20130305
  Receipt Date: 20130305
  Transmission Date: 20140127
  Serious: Yes (Other)
  Sender: FDA-Public Use
  Company Number: 163-21880-12042163

PATIENT
  Age: 84 Year
  Sex: Female
  Weight: 67.59 kg

DRUGS (3)
  1. REVLIMID (LENALIDOMIDE) [Suspect]
     Indication: PLASMA CELL MYELOMA
     Dates: start: 20100609
  2. ZOMETA (ZOLEDRONIC ACID) [Concomitant]
  3. ARANESP (DARBEPOETIN ALFA) [Concomitant]

REACTIONS (2)
  - Fatigue [None]
  - Sensitivity of teeth [None]
